FAERS Safety Report 9885626 (Version 1)
Quarter: 2014Q1

REPORT INFORMATION
  Report Type: Spontaneous
  Country: JP (occurrence: None)
  Receive Date: 20140206
  Receipt Date: 20140206
  Transmission Date: 20141002
  Serious: Yes (Death)
  Sender: FDA-Public Use
  Company Number: 2014HINLIT0031

PATIENT
  Age: 3 Hour
  Sex: Male
  Weight: 1.7 kg

DRUGS (2)
  1. INDOMETHACIN [Suspect]
     Indication: TOCOLYSIS
     Dosage: 50 MG, UNK, TRANSPLACENTAL
     Route: 064
  2. RITODRINE HYDROCHLORIDE AND MAGNESIUM SULFATE ( RITODRINE HYDROCHLORIDE AND MAGNESIUM SULFATE) [Concomitant]

REACTIONS (14)
  - Pulmonary thrombosis [None]
  - Off label use [None]
  - Pericardial effusion [None]
  - Skin oedema [None]
  - Ascites [None]
  - Tricuspid valve incompetence [None]
  - Hydrops foetalis [None]
  - Chylothorax [None]
  - Maternal drugs affecting foetus [None]
  - Hypoxia [None]
  - Metabolic acidosis [None]
  - Right ventricular failure [None]
  - Caesarean section [None]
  - Premature baby [None]
